FAERS Safety Report 12296252 (Version 1)
Quarter: 2016Q2

REPORT INFORMATION
  Report Type: Spontaneous
  Country: FR (occurrence: FR)
  Receive Date: 20160422
  Receipt Date: 20160422
  Transmission Date: 20160815
  Serious: Yes (Hospitalization)
  Sender: FDA-Public Use
  Company Number: FR-SA-2016SA076645

PATIENT
  Age: 30 Year
  Sex: Male

DRUGS (2)
  1. ZELITREX [Concomitant]
     Active Substance: VALACYCLOVIR HYDROCHLORIDE
     Route: 065
  2. LOVENOX [Suspect]
     Active Substance: ENOXAPARIN SODIUM
     Indication: VENOUS THROMBOSIS
     Dosage: 8000 IU ANTI-XA/ 0.8 ML, INJECTABLE SOLUTION (S.C.) IN AMPOULE
     Route: 058
     Dates: end: 20150903

REACTIONS (4)
  - Urticaria [Recovered/Resolved]
  - Tachycardia [Recovered/Resolved]
  - Dyspnoea [Recovered/Resolved]
  - Face oedema [Recovered/Resolved]

NARRATIVE: CASE EVENT DATE: 20150903
